FAERS Safety Report 15235157 (Version 1)
Quarter: 2018Q3

REPORT INFORMATION
  Report Type: Spontaneous
  Country: CN (occurrence: CN)
  Receive Date: 20180803
  Receipt Date: 20180803
  Transmission Date: 20181010
  Serious: Yes (Life-Threatening, Hospitalization, Other)
  Sender: FDA-Public Use
  Company Number: CN-ALKEM LABORATORIES LIMITED-CN-ALKEM-2018-00098

PATIENT
  Age: 24 Year
  Sex: Female

DRUGS (9)
  1. MOXIFLOXACIN. [Suspect]
     Active Substance: MOXIFLOXACIN
     Indication: INFLUENZA
     Dosage: UNK
     Route: 065
     Dates: start: 20170210, end: 20170211
  2. AZITHROMYCIN ANHYDROUS. [Suspect]
     Active Substance: AZITHROMYCIN ANHYDROUS
     Indication: INFLUENZA
     Dosage: UNK
     Route: 065
     Dates: start: 20170213
  3. VANCOMYCIN [Suspect]
     Active Substance: VANCOMYCIN
     Indication: INFLUENZA
     Dosage: UNK
     Route: 065
     Dates: start: 20170211, end: 20170213
  4. CEFUROXIME AXETIL. [Suspect]
     Active Substance: CEFUROXIME AXETIL
     Indication: INFLUENZA
     Dosage: UNK
     Route: 065
     Dates: start: 20170213
  5. CEFOTAXIME [Suspect]
     Active Substance: CEFOTAXIME SODIUM
     Indication: INFLUENZA
     Dosage: UNK
     Route: 065
     Dates: start: 201702
  6. CILASTATIN SODIUM, IMIPENEM [Suspect]
     Active Substance: CILASTATIN SODIUM\IMIPENEM
     Indication: INFLUENZA
     Dosage: UNK
     Route: 065
     Dates: start: 20170211, end: 20170213
  7. CEFMINOX SODIUM [Suspect]
     Active Substance: CEFMINOX SODIUM
     Indication: INFLUENZA
     Dosage: UNK
     Route: 065
     Dates: start: 20170206, end: 20170210
  8. OSELTAMIVIR [Suspect]
     Active Substance: OSELTAMIVIR
     Indication: INFLUENZA
     Dosage: UNK
     Route: 065
     Dates: start: 20170210, end: 20170211
  9. OSELTAMIVIR [Suspect]
     Active Substance: OSELTAMIVIR
     Dosage: UNK
     Route: 065
     Dates: start: 20170213

REACTIONS (1)
  - Drug ineffective [Unknown]
